FAERS Safety Report 4664913-8 (Version None)
Quarter: 2005Q2

REPORT INFORMATION
  Report Type: 
  Country: None (occurrence: None)
  Receive Date: 20050517
  Receipt Date: 20050513
  Transmission Date: 20051028
  Serious: Yes (Death, Hospitalization)
  Sender: FDA-Public Use
  Company Number: TCI20050A02345

PATIENT
  Age: 82 Year
  Sex: Male

DRUGS (2)
  1. LEUPLIN [Suspect]
     Indication: PROSTATE CANCER
     Dosage: 3.75 MG (3.75 MG, 1 IN 28 D)
     Route: 058
     Dates: start: 20041210, end: 20050121
  2. FLUTAMIDE [Suspect]
     Indication: PROSTATE CANCER
     Dosage: 375 MG (375 MG, 1 D)
     Route: 048
     Dates: start: 20041119, end: 20050121

REACTIONS (4)
  - BLOOD ALKALINE PHOSPHATASE INCREASED [None]
  - HEPATIC FUNCTION ABNORMAL [None]
  - LIVER DISORDER [None]
  - PNEUMONIA [None]
